FAERS Safety Report 10010905 (Version 1)
Quarter: 2014Q1

REPORT INFORMATION
  Report Type: Spontaneous
  Country: GB (occurrence: None)
  Receive Date: 20140311
  Receipt Date: 20140311
  Transmission Date: 20141002
  Serious: Yes (Life-Threatening)
  Sender: FDA-Public Use
  Company Number: FK201400672

PATIENT
  Age: 81 Year
  Sex: Male
  Weight: 76.15 kg

DRUGS (6)
  1. LACTULOSE [Suspect]
     Indication: PRODUCT USED FOR UNKNOWN INDICATION
     Route: 048
     Dates: end: 20131228
  2. AMOXICILLIN SODIUM (AMOXICILLIN SODIUM)(AMOXICILLIN SODIUM) [Suspect]
     Indication: URINARY TRACT INFECTION
     Route: 048
     Dates: start: 20131214, end: 20131216
  3. FERROUS SULPHATE [Suspect]
     Indication: PRODUCT USED FOR UNKNOWN INDICATION
     Route: 048
     Dates: end: 20131228
  4. LANSOPRAZOLE (LANSOPRAZOLE)(LANSOPRAZOLE) [Suspect]
     Indication: PRODUCT USED FOR UNKNOWN INDICATION
  5. SENNA (SENNA ALEXANDRINA) [Suspect]
     Indication: PRODUCT USED FOR UNKNOWN INDICATION
     Dates: end: 20131223
  6. TACOZIN(PIP/TAZO) [Suspect]
     Indication: PNEUMONIA
     Dosage: INTRAVENOUS (NOT OTHERWISE SPECIFIED)
     Route: 042
     Dates: start: 20131216, end: 20131221

REACTIONS (1)
  - Clostridium difficile colitis [None]
